FAERS Safety Report 10823691 (Version 3)
Quarter: 2015Q1

REPORT INFORMATION
  Report Type: Report from Study
  Country: US (occurrence: US)
  Receive Date: 20150218
  Receipt Date: 20150312
  Transmission Date: 20150721
  Serious: Yes (Other)
  Sender: FDA-Public Use
  Company Number: US-EXELIXIS-CABO-15005159

PATIENT
  Age: 71 Year
  Sex: Female
  Weight: 63.96 kg

DRUGS (12)
  1. BAYER ASPIRIN [Concomitant]
     Active Substance: ASPIRIN
  2. METOCLOPRAMIDE. [Concomitant]
     Active Substance: METOCLOPRAMIDE
  3. OXYCODONE WITH APAP [Concomitant]
  4. NEXIUM [Concomitant]
     Active Substance: ESOMEPRAZOLE MAGNESIUM
  5. FOSINOPRIL SODIUM. [Concomitant]
     Active Substance: FOSINOPRIL SODIUM
  6. LEVOTHYROXINE [Concomitant]
     Active Substance: LEVOTHYROXINE
  7. CIPROFLOXACIN. [Concomitant]
     Active Substance: CIPROFLOXACIN
     Indication: DYSURIA
     Dosage: 250 MG, BID
     Dates: start: 20150201, end: 20150207
  8. CABOZANTINIB [Suspect]
     Active Substance: CABOZANTINIB
     Indication: THYROID CANCER
     Dosage: 140 MG, QD
     Route: 048
     Dates: start: 20150122, end: 20150210
  9. CALCIUM 600 PLUS VITAMIN D3 [Concomitant]
  10. CAPRELSA [Concomitant]
     Active Substance: VANDETANIB
     Dosage: UNK
     Dates: end: 20150115
  11. METOPROLOL [Concomitant]
     Active Substance: METOPROLOL
  12. CABOZANTINIB [Suspect]
     Active Substance: CABOZANTINIB
     Dosage: UNK
     Dates: start: 20150215

REACTIONS (6)
  - Dysuria [Recovered/Resolved]
  - Fatigue [Unknown]
  - Asthenia [Unknown]
  - Electrocardiogram QT prolonged [Recovered/Resolved]
  - General physical health deterioration [Unknown]
  - Urinary tract infection [None]

NARRATIVE: CASE EVENT DATE: 2015
